FAERS Safety Report 6646201-3 (Version None)
Quarter: 2010Q1

REPORT INFORMATION
  Report Type: 
  Country: None (occurrence: None)
  Receive Date: 20100323
  Receipt Date: 20100316
  Transmission Date: 20100710
  Serious: Yes (Death, Life-Threatening, Other)
  Sender: FDA-Public Use
  Company Number: DE-SANOFI-AVENTIS-2010SA010767

PATIENT
  Age: 41 Year
  Sex: Male
  Weight: 118 kg

DRUGS (1)
  1. MULTAQ [Suspect]
     Route: 048
     Dates: start: 20100122, end: 20100221

REACTIONS (2)
  - BLOOD CREATININE INCREASED [None]
  - DEATH [None]
